FAERS Safety Report 19122620 (Version 1)
Quarter: 2021Q2

REPORT INFORMATION
  Report Type: Spontaneous
  Country: IL (occurrence: IL)
  Receive Date: 20210412
  Receipt Date: 20210412
  Transmission Date: 20210717
  Serious: Yes (Other)
  Sender: FDA-Public Use
  Company Number: IL-009507513-2104ISR002109

PATIENT
  Sex: Male

DRUGS (1)
  1. KEYTRUDA [Suspect]
     Active Substance: PEMBROLIZUMAB
     Indication: SQUAMOUS CELL CARCINOMA OF HEAD AND NECK
     Dosage: SECOND LINE
     Dates: start: 201703, end: 201803

REACTIONS (7)
  - Impaired driving ability [Recovering/Resolving]
  - Weight decreased [Recovering/Resolving]
  - Neuropathy peripheral [Recovering/Resolving]
  - Asthenia [Recovering/Resolving]
  - Ill-defined disorder [Recovering/Resolving]
  - Mental disorder [Recovering/Resolving]
  - Depression [Recovering/Resolving]
